FAERS Safety Report 4940510-1 (Version None)
Quarter: 2006Q1

REPORT INFORMATION
  Report Type: 
  Country: None (occurrence: None)
  Receive Date: 20060112
  Receipt Date: 20050428
  Transmission Date: 20060701
  Serious: Yes (Hospitalization)
  Sender: FDA-Public Use
  Company Number: 2005034971

PATIENT
  Age: 18 Year
  Sex: Female
  Weight: 58 kg

DRUGS (18)
  1. ATGAM [Suspect]
     Indication: IMMUNOSUPPRESSION
     Dosage: 10 MG/KG (10 MG/KG, 2 DOSES), INTRAVENOUS
     Route: 042
     Dates: start: 20050208, end: 20050215
  2. IMMUNOGLOBULINS [Concomitant]
  3. ACYCLOVIR [Concomitant]
  4. FLUCONAZOLE [Concomitant]
  5. CASPOFUNGIN [Concomitant]
  6. LEUPROLIDE ACETATE [Concomitant]
  7. CONLUNETT (MESTRANOL, NORETHISTERONE) [Concomitant]
  8. FENTANYL [Concomitant]
  9. ALBUMIN (HUMAN) [Concomitant]
  10. DIPHENHYDRAMINE HYDROCHLORIDE [Concomitant]
  11. PROMETHAZINE [Concomitant]
  12. LORAZEPAM [Concomitant]
  13. TPN [Concomitant]
  14. CYCLOPHOSPHAMIDE [Concomitant]
  15. VORICONAZOLE [Concomitant]
  16. FOSCARNET [Concomitant]
  17. GRANULOCYTE COLONY STIMULATING FACTOR [Concomitant]
  18. GRANULOCYTE MACROPHAGE COLONY STIM FACTOR [Concomitant]

REACTIONS (2)
  - BACTERIAL CULTURE POSITIVE [None]
  - CARDIAC FAILURE CONGESTIVE [None]
